FAERS Safety Report 21193967 (Version 1)
Quarter: 2022Q3

REPORT INFORMATION
  Report Type: Spontaneous
  Country: US (occurrence: US)
  Receive Date: 20220810
  Receipt Date: 20220810
  Transmission Date: 20221027
  Serious: Yes (Other)
  Sender: FDA-Public Use
  Company Number: US-AIMMUNE THERAPEUTICS, INC.-2022AIMT00582

PATIENT

DRUGS (1)
  1. PALFORZIA [Suspect]
     Active Substance: PEANUT
     Indication: Food allergy
     Dosage: 240 MG, 1X/DAY
     Route: 048
     Dates: start: 20220222

REACTIONS (6)
  - Hypersensitivity [Unknown]
  - Swelling [Unknown]
  - Oral pruritus [Unknown]
  - Abdominal pain [Unknown]
  - Urticaria [Unknown]
  - Nausea [Unknown]
